FAERS Safety Report 9744054 (Version 2)
Quarter: 2013Q4

REPORT INFORMATION
  Report Type: Spontaneous
  Country: JP (occurrence: JP)
  Receive Date: 20131210
  Receipt Date: 20131231
  Transmission Date: 20140711
  Serious: Yes (Other)
  Sender: FDA-Public Use
  Company Number: JP-GLAXOSMITHKLINE-B0878201A

PATIENT
  Age: 57 Year
  Sex: Female
  Weight: 59 kg

DRUGS (3)
  1. HYCAMTIN [Suspect]
     Indication: OVARIAN CANCER RECURRENT
     Dosage: 1.5MGM2 PER DAY
     Route: 042
     Dates: start: 20121127, end: 20130209
  2. EMEND [Concomitant]
     Route: 048
     Dates: start: 20121127, end: 20130207
  3. PRIMPERAN [Concomitant]
     Dosage: 15MG PER DAY
     Route: 048
     Dates: start: 20121130, end: 20130211

REACTIONS (6)
  - Platelet count decreased [Recovered/Resolved]
  - Nausea [Recovered/Resolved]
  - Decreased appetite [Unknown]
  - White blood cell count decreased [Recovering/Resolving]
  - Alopecia [Recovering/Resolving]
  - Malaise [Recovered/Resolved]
